FAERS Safety Report 5548608-4 (Version None)
Quarter: 2007Q4

REPORT INFORMATION
  Report Type: 
  Country: None (occurrence: None)
  Receive Date: 20071211
  Receipt Date: 20071210
  Transmission Date: 20080405
  Serious: Yes (Hospitalization)
  Sender: FDA-Public Use
  Company Number: US-GENENTECH-249187

PATIENT
  Sex: Female
  Weight: 78.1 kg

DRUGS (3)
  1. AVASTIN [Suspect]
     Indication: NON-SMALL CELL LUNG CANCER
     Dosage: 15 MG/KG, Q3W
     Route: 042
     Dates: start: 20070919
  2. TARCEVA [Suspect]
     Indication: DRUG USE FOR UNKNOWN INDICATION
     Dosage: 150 MG, QD
     Route: 048
     Dates: start: 20070919, end: 20071003
  3. 0.9% NS [Concomitant]
     Indication: RENAL FAILURE
     Dosage: UNK, 3/WEEK
     Dates: start: 20070903, end: 20071005

REACTIONS (1)
  - FLUID OVERLOAD [None]
